FAERS Safety Report 4691198-9 (Version None)
Quarter: 2005Q2

REPORT INFORMATION
  Report Type: 
  Country: None (occurrence: None)
  Receive Date: 20050610
  Receipt Date: 20041025
  Transmission Date: 20051028
  Serious: Yes (Hospitalization)
  Sender: FDA-Public Use
  Company Number: 9173

PATIENT
  Age: 74 Year
  Sex: Male

DRUGS (2)
  1. AMIODARONE HCL [Suspect]
     Indication: ATRIAL FIBRILLATION
     Dosage: 0.5 MG PER MINUTE IV
     Route: 042
     Dates: start: 20041016, end: 20041018
  2. AMIODARONE HCL [Suspect]
     Indication: ATRIAL FLUTTER
     Dosage: 0.5 MG PER MINUTE IV
     Route: 042
     Dates: start: 20041016, end: 20041018

REACTIONS (1)
  - INJECTION SITE EXTRAVASATION [None]
